FAERS Safety Report 20523931 (Version 1)
Quarter: 2022Q1

REPORT INFORMATION
  Report Type: Other
  Country: CN (occurrence: None)
  Receive Date: 20220228
  Receipt Date: 20220228
  Transmission Date: 20220423
  Serious: Yes (Other)
  Sender: FDA-Public Use
  Company Number: CN-ROCHE-3033562

PATIENT
  Age: 30 Year
  Sex: Female

DRUGS (12)
  1. RITUXIMAB [Suspect]
     Active Substance: RITUXIMAB
     Indication: Autoimmune haemolytic anaemia
     Route: 065
  2. METHYLPREDNISOLONE [Suspect]
     Active Substance: METHYLPREDNISOLONE
     Indication: Autoimmune haemolytic anaemia
     Route: 042
  3. METHYLPREDNISOLONE [Suspect]
     Active Substance: METHYLPREDNISOLONE
     Route: 042
  4. METHYLPREDNISOLONE [Suspect]
     Active Substance: METHYLPREDNISOLONE
     Route: 042
  5. CYCLOSPORINE [Suspect]
     Active Substance: CYCLOSPORINE
     Indication: Autoimmune haemolytic anaemia
     Route: 048
  6. MOXIFLOXACIN [Concomitant]
     Active Substance: MOXIFLOXACIN
     Route: 042
  7. VORICONAZOLE [Concomitant]
     Active Substance: VORICONAZOLE
     Route: 042
  8. CASPOFUNGIN [Concomitant]
     Active Substance: CASPOFUNGIN
  9. MEROPENEM [Concomitant]
     Active Substance: MEROPENEM
  10. VANCOMYCIN [Concomitant]
     Active Substance: VANCOMYCIN
  11. ACYCLOVIR [Concomitant]
     Active Substance: ACYCLOVIR
  12. GANCICLOVIR [Concomitant]
     Active Substance: GANCICLOVIR
     Route: 042

REACTIONS (2)
  - Pneumonia [Unknown]
  - Respiratory failure [Unknown]
